FAERS Safety Report 8663031 (Version 2)
Quarter: 2013Q1

REPORT INFORMATION
  Report Type: Spontaneous
  Country: JP (occurrence: JP)
  Receive Date: 20120712
  Receipt Date: 20130131
  Transmission Date: 20140127
  Serious: Yes (Life-Threatening, Hospitalization)
  Sender: FDA-Public Use
  Company Number: JP-BRISTOL-MYERS SQUIBB COMPANY-16613036

PATIENT
  Age: 72 Year
  Sex: Female
  Weight: 48.6 kg

DRUGS (4)
  1. ORENCIA [Suspect]
     Indication: RHEUMATOID ARTHRITIS
     Dosage: ROUTE OF ADM:IV
     Route: 041
     Dates: start: 20101101, end: 20120319
  2. RHEUMATREX [Suspect]
     Indication: RHEUMATOID ARTHRITIS
     Dosage: RESUMED ON 15MAY12 6MG
     Route: 048
     Dates: start: 20030522, end: 20120319
  3. BONALON [Concomitant]
     Indication: OSTEOPOROSIS
     Dosage: TAB
     Route: 048
     Dates: start: 20071015
  4. AMLODIN [Concomitant]
     Indication: HYPERTENSION
     Dosage: 5MG TAB
     Route: 048
     Dates: start: 20030522

REACTIONS (2)
  - Infectious pleural effusion [Recovered/Resolved]
  - Pulmonary fistula [Unknown]
